FAERS Safety Report 10245173 (Version 1)
Quarter: 2014Q2

REPORT INFORMATION
  Report Type: Spontaneous
  Country: JP (occurrence: JP)
  Receive Date: 20140618
  Receipt Date: 20140618
  Transmission Date: 20141212
  Serious: Yes (Other)
  Sender: FDA-Public Use
  Company Number: JP-WATSON-2014-13696

PATIENT
  Age: 33 Year
  Sex: Female

DRUGS (4)
  1. PACLITAXEL (UNKNOWN) [Suspect]
     Indication: OVARIAN CANCER RECURRENT
     Dosage: UNK
     Route: 065
  2. PACLITAXEL (UNKNOWN) [Suspect]
     Indication: UTERINE CANCER
  3. CARBOPLATIN (UNKNOWN) [Suspect]
     Indication: OVARIAN CANCER RECURRENT
     Dosage: UNK
     Route: 065
  4. CARBOPLATIN (UNKNOWN) [Suspect]
     Indication: UTERINE CANCER

REACTIONS (2)
  - Rash papular [Recovered/Resolved]
  - Pruritus [Recovered/Resolved]
